FAERS Safety Report 8133826 (Version 2)
Quarter: 2013Q1

REPORT INFORMATION
  Report Type: Spontaneous
  Country: US (occurrence: US)
  Receive Date: 20110913
  Receipt Date: 20130315
  Transmission Date: 20140127
  Serious: Yes (Hospitalization)
  Sender: FDA-Public Use
  Company Number: US-GLAXOSMITHKLINE-A0897708A

PATIENT
  Age: 66 Year
  Sex: Male
  Weight: 107.3 kg

DRUGS (8)
  1. AVANDARYL [Suspect]
     Indication: DIABETES MELLITUS
     Route: 048
     Dates: start: 20061025, end: 20100209
  2. TOPROL XL [Concomitant]
  3. SYNTHROID [Concomitant]
  4. BENICAR [Concomitant]
  5. MOBIC [Concomitant]
  6. ALLEGRA [Concomitant]
  7. PRAVACHOL [Concomitant]
  8. CLONIDINE [Concomitant]

REACTIONS (1)
  - Cerebrovascular accident [Not Recovered/Not Resolved]
